FAERS Safety Report 14629122 (Version 1)
Quarter: 2018Q1

REPORT INFORMATION
  Report Type: Report from Study
  Country: JP (occurrence: JP)
  Receive Date: 20180313
  Receipt Date: 20180313
  Transmission Date: 20180509
  Serious: Yes (Other)
  Sender: FDA-Public Use
  Company Number: JP-MERCK KGAA-2043579

PATIENT
  Age: 4 Month
  Sex: Male
  Weight: 1.64 kg

DRUGS (1)
  1. NOVOTHYROX [Suspect]
     Active Substance: LEVOTHYROXINE SODIUM
     Indication: HYPOTHYROIDISM

REACTIONS (3)
  - Hepatic function abnormal [Recovered/Resolved]
  - Hypoglycaemia [None]
  - Cholestasis [None]
